FAERS Safety Report 21555469 (Version 2)
Quarter: 2022Q4

REPORT INFORMATION
  Report Type: Spontaneous
  Country: JP (occurrence: JP)
  Receive Date: 20221104
  Receipt Date: 20221109
  Transmission Date: 20230112
  Serious: Yes (Other)
  Sender: FDA-Public Use
  Company Number: JP-UCBJ-CD202211087UCBPHAPROD

PATIENT
  Age: 61 Year
  Sex: Male

DRUGS (3)
  1. VIMPAT [Suspect]
     Active Substance: LACOSAMIDE
     Indication: Epilepsy
     Dosage: 300MG DAILY
     Route: 048
  2. VIMPAT [Suspect]
     Active Substance: LACOSAMIDE
     Dosage: 200 MILLIGRAM, 2X/DAY (BID)
     Route: 048
     Dates: start: 20220128, end: 20220626
  3. FYCOMPA [Suspect]
     Active Substance: PERAMPANEL
     Indication: Epilepsy
     Dosage: 8MG DAILY
     Route: 048

REACTIONS (2)
  - Hallucination, visual [Recovered/Resolved]
  - Epilepsy [Unknown]
